FAERS Safety Report 14612850 (Version 1)
Quarter: 2018Q1

REPORT INFORMATION
  Report Type: Spontaneous
  Country: US (occurrence: US)
  Receive Date: 20180307
  Receipt Date: 20180307
  Transmission Date: 20180509
  Serious: Yes (Other)
  Sender: FDA-Public Use
  Company Number: None

PATIENT
  Age: 60 Year
  Sex: Male
  Weight: 81 kg

DRUGS (1)
  1. VIAGRA [Suspect]
     Active Substance: SILDENAFIL CITRATE
     Indication: ERECTILE DYSFUNCTION
     Dosage: ?          OTHER FREQUENCY:2 TIMES / A WEEK;?
     Route: 048
     Dates: start: 20180301

REACTIONS (1)
  - Haematospermia [None]

NARRATIVE: CASE EVENT DATE: 20180301
